FAERS Safety Report 18883819 (Version 1)
Quarter: 2021Q1

REPORT INFORMATION
  Report Type: Spontaneous
  Country: US (occurrence: US)
  Receive Date: 20210212
  Receipt Date: 20210212
  Transmission Date: 20210420
  Serious: No
  Sender: FDA-Public Use
  Company Number: US-BAUSCH-BL-2021-004792

PATIENT
  Age: 50 Year
  Sex: Male
  Weight: 70.37 kg

DRUGS (5)
  1. XIFAXAN [Suspect]
     Active Substance: RIFAXIMIN
     Indication: PRODUCT USE IN UNAPPROVED INDICATION
  2. UCERIS [Suspect]
     Active Substance: BUDESONIDE
     Indication: CROHN^S DISEASE
     Route: 054
     Dates: start: 20210202
  3. XIFAXAN [Suspect]
     Active Substance: RIFAXIMIN
     Indication: CROHN^S DISEASE
     Dosage: SIX TO SEVEN YEARS AGO
     Route: 048
  4. UCERIS [Suspect]
     Active Substance: BUDESONIDE
     Indication: COLITIS
  5. XIFAXAN [Suspect]
     Active Substance: RIFAXIMIN
     Indication: COLITIS
     Dosage: ONCE DAILY IN THE MORNING
     Route: 048
     Dates: start: 202101

REACTIONS (7)
  - Skin irritation [Unknown]
  - Product use in unapproved indication [Unknown]
  - Inappropriate schedule of product administration [Unknown]
  - Musculoskeletal pain [Not Recovered/Not Resolved]
  - Circumstance or information capable of leading to medication error [Unknown]
  - Inability to afford medication [Unknown]
  - Burning sensation [Not Recovered/Not Resolved]

NARRATIVE: CASE EVENT DATE: 202012
